FAERS Safety Report 10913788 (Version 1)
Quarter: 2015Q1

REPORT INFORMATION
  Report Type: Spontaneous
  Country: FR (occurrence: None)
  Receive Date: 20150310
  Receipt Date: 20150310
  Transmission Date: 20150721
  Serious: Yes (Hospitalization)
  Sender: FDA-Public Use
  Company Number: FR-ZYDUS-006905

PATIENT
  Age: 80 Year
  Sex: Female

DRUGS (1)
  1. NAPROXEN (NAPROXEN) [Suspect]
     Active Substance: NAPROXEN
     Indication: ARTHRALGIA

REACTIONS (11)
  - Eosinophilia [None]
  - Pleural effusion [None]
  - Hypocapnia [None]
  - Haematuria [None]
  - Hypoxia [None]
  - Hepatocellular injury [None]
  - Interstitial lung disease [None]
  - Renal failure [None]
  - Lung infiltration [None]
  - Skin disorder [None]
  - Crepitations [None]
